FAERS Safety Report 22049650 (Version 1)
Quarter: 2023Q1

REPORT INFORMATION
  Report Type: Spontaneous
  Country: US (occurrence: None)
  Receive Date: 20230228
  Receipt Date: 20230228
  Transmission Date: 20230417
  Serious: Yes (Death)
  Sender: FDA-Public Use
  Company Number: None

PATIENT
  Age: 78 Year
  Sex: Male
  Weight: 67.18 kg

DRUGS (16)
  1. ZARXIO [Suspect]
     Active Substance: FILGRASTIM-SNDZ
     Indication: Myelofibrosis
     Dosage: OTHER STRENGTH : 480/0.8 UG/ML;?FREQUENCY : WEEKLY;?
     Route: 058
  2. ALLOPURINOL [Concomitant]
     Active Substance: ALLOPURINOL
  3. AMLODIPINE BESYLATE [Concomitant]
     Active Substance: AMLODIPINE BESYLATE
  4. Danzaol [Concomitant]
  5. DEXAMETHASONE [Concomitant]
     Active Substance: DEXAMETHASONE
  6. EZETIMIBE [Concomitant]
     Active Substance: EZETIMIBE
  7. FINASTERIDE [Concomitant]
     Active Substance: FINASTERIDE
  8. HYDROXYUREA [Concomitant]
     Active Substance: HYDROXYUREA
  9. JAKAFI [Concomitant]
     Active Substance: RUXOLITINIB
  10. KETOCONAZOLE [Concomitant]
     Active Substance: KETOCONAZOLE
  11. LEVOTHYROXINE SODIUM [Concomitant]
     Active Substance: LEVOTHYROXINE SODIUM
  12. Neomycin-Polymycin-HC [Concomitant]
  13. ONDANSETRON HCL [Concomitant]
     Active Substance: ONDANSETRON HYDROCHLORIDE
  14. RETACRIT [Concomitant]
     Active Substance: EPOETIN ALFA-EPBX
  15. TAMSULOSIN HYDROCHLORIDE [Concomitant]
     Active Substance: TAMSULOSIN HYDROCHLORIDE
  16. VIDAZA [Concomitant]
     Active Substance: AZACITIDINE

REACTIONS (1)
  - Death [None]
